FAERS Safety Report 10954928 (Version 2)
Quarter: 2015Q2

REPORT INFORMATION
  Report Type: Spontaneous
  Country: US (occurrence: US)
  Receive Date: 20150325
  Receipt Date: 20150622
  Transmission Date: 20150821
  Serious: No
  Sender: FDA-Public Use
  Company Number: US-009507513-1503USA009452

PATIENT
  Age: 18 Year
  Sex: Male

DRUGS (1)
  1. RAGWITEK [Suspect]
     Active Substance: AMBROSIA ARTEMISIIFOLIA POLLEN
     Indication: SEASONAL ALLERGY
     Dosage: UNK
     Route: 060
     Dates: start: 201503, end: 201503

REACTIONS (1)
  - Tongue haemorrhage [Unknown]

NARRATIVE: CASE EVENT DATE: 201503
